FAERS Safety Report 15150022 (Version 1)
Quarter: 2018Q3

REPORT INFORMATION
  Report Type: Spontaneous
  Country: US (occurrence: US)
  Receive Date: 20180716
  Receipt Date: 20180716
  Transmission Date: 20181010
  Serious: Yes (Hospitalization, Other)
  Sender: FDA-Public Use
  Company Number: US-PFIZER INC-2018281465

PATIENT
  Age: 78 Year
  Sex: Female
  Weight: 63.49 kg

DRUGS (5)
  1. DOFETILIDE. [Suspect]
     Active Substance: DOFETILIDE
     Indication: ATRIAL FIBRILLATION
     Dosage: 125 UG, 2X/DAY
     Route: 048
     Dates: start: 20161223
  2. LEVOTHYROXINE. [Concomitant]
     Active Substance: LEVOTHYROXINE
     Dosage: UNK
     Route: 048
  3. COUMADIN [Concomitant]
     Active Substance: WARFARIN SODIUM
     Dosage: UNK
     Route: 048
  4. OMEPRAZOLE. [Concomitant]
     Active Substance: OMEPRAZOLE
     Dosage: UNK
     Route: 048
  5. METOPROLOL. [Concomitant]
     Active Substance: METOPROLOL
     Dosage: 12.5 MG, 2X/DAY
     Route: 048

REACTIONS (9)
  - Dizziness [Unknown]
  - Heart rate decreased [Unknown]
  - Asthenia [Unknown]
  - Nervousness [Unknown]
  - Fatigue [Unknown]
  - Chest discomfort [Unknown]
  - Heart rate increased [Unknown]
  - Sleep deficit [Unknown]
  - Drug ineffective [Not Recovered/Not Resolved]
